FAERS Safety Report 13418708 (Version 1)
Quarter: 2017Q2

REPORT INFORMATION
  Report Type: Spontaneous
  Country: US (occurrence: US)
  Receive Date: 20170406
  Receipt Date: 20170406
  Transmission Date: 20170830
  Serious: Yes (Hospitalization)
  Sender: FDA-Public Use
  Company Number: US-IMPAX LABORATORIES, INC-2017-IPXL-00816

PATIENT
  Age: 24 Year
  Sex: Male

DRUGS (7)
  1. LORAZEPAM. [Suspect]
     Active Substance: LORAZEPAM
     Indication: SEDATION
     Dosage: UNK
     Route: 065
  2. LORAZEPAM. [Suspect]
     Active Substance: LORAZEPAM
     Indication: SEROTONIN SYNDROME
     Dosage: UNK
     Route: 065
  3. CITALOPRAM [Suspect]
     Active Substance: CITALOPRAM HYDROBROMIDE
     Indication: PRODUCT USED FOR UNKNOWN INDICATION
     Dosage: UNK
     Route: 065
  4. QUETIAPINE. [Concomitant]
     Active Substance: QUETIAPINE
     Indication: PRODUCT USED FOR UNKNOWN INDICATION
     Dosage: UNK
     Route: 065
  5. CLONAZEPAM. [Concomitant]
     Active Substance: CLONAZEPAM
     Indication: PRODUCT USED FOR UNKNOWN INDICATION
     Dosage: UNK
     Route: 065
  6. CYPROHEPTADINE HYDROCHLORIDE. [Suspect]
     Active Substance: CYPROHEPTADINE HYDROCHLORIDE
     Indication: SEROTONIN SYNDROME
     Dosage: 12 MG, UNK
     Route: 065
  7. CYPROHEPTADINE HYDROCHLORIDE. [Suspect]
     Active Substance: CYPROHEPTADINE HYDROCHLORIDE
     Dosage: 2 MG, EVERY 2HR
     Route: 065

REACTIONS (2)
  - Catatonia [Unknown]
  - Serotonin syndrome [Unknown]
